FAERS Safety Report 7066510-6 (Version None)
Quarter: 2010Q4

REPORT INFORMATION
  Report Type: 
  Country: None (occurrence: None)
  Receive Date: 20101027
  Receipt Date: 20100318
  Transmission Date: 20110411
  Serious: No
  Sender: FDA-Public Use
  Company Number: US-WYE-H14260510

PATIENT
  Sex: Female

DRUGS (5)
  1. PREMPRO [Suspect]
     Indication: PREMATURE MENOPAUSE
     Route: 065
     Dates: start: 20020101
  2. PREMPRO [Suspect]
     Route: 065
     Dates: start: 20080101
  3. PREMPRO [Suspect]
     Route: 065
     Dates: start: 20090101, end: 20091001
  4. SYNTHROID [Concomitant]
  5. CLONIDINE [Concomitant]

REACTIONS (9)
  - ABDOMINAL DISCOMFORT [None]
  - DRUG WITHDRAWAL SYNDROME [None]
  - DRY SKIN [None]
  - HAIR TEXTURE ABNORMAL [None]
  - INSOMNIA [None]
  - NAIL DISORDER [None]
  - THERAPEUTIC RESPONSE UNEXPECTED [None]
  - TRICHORRHEXIS [None]
  - WEIGHT INCREASED [None]
